FAERS Safety Report 10770382 (Version 2)
Quarter: 2015Q1

REPORT INFORMATION
  Report Type: Report from Study
  Country: GB (occurrence: GB)
  Receive Date: 20150206
  Receipt Date: 20150210
  Transmission Date: 20150721
  Serious: Yes (Hospitalization)
  Sender: FDA-Public Use
  Company Number: GB-ABBVIE-14P-167-1267253-00

PATIENT
  Age: 62 Year
  Sex: Male

DRUGS (1)
  1. DUODOPA [Suspect]
     Active Substance: CARBIDOPA\LEVODOPA
     Indication: PARKINSON^S DISEASE
     Route: 050
     Dates: start: 20110613

REACTIONS (12)
  - Abdominal wall infection [Recovering/Resolving]
  - Device leakage [Unknown]
  - Device dislocation [Recovered/Resolved]
  - Device dislocation [Unknown]
  - Infection [Recovering/Resolving]
  - Stoma site pain [Not Recovered/Not Resolved]
  - Abdominal pain [Not Recovered/Not Resolved]
  - Induration [Unknown]
  - Abdominal tenderness [Unknown]
  - Stoma site infection [Unknown]
  - Excessive granulation tissue [Unknown]
  - Pain [Not Recovered/Not Resolved]

NARRATIVE: CASE EVENT DATE: 201303
